FAERS Safety Report 18391305 (Version 2)
Quarter: 2021Q2

REPORT INFORMATION
  Report Type: Spontaneous
  Country: US (occurrence: US)
  Receive Date: 20201016
  Receipt Date: 20210408
  Transmission Date: 20210717
  Serious: Yes (Other)
  Sender: FDA-Public Use
  Company Number: US-SA-2020SA286715

PATIENT
  Age: 63 Year
  Sex: Male

DRUGS (1)
  1. ZANTAC [Suspect]
     Active Substance: RANITIDINE HYDROCHLORIDE
     Indication: DYSPEPSIA
     Dosage: 150 MG, QD
     Dates: start: 199001, end: 201804

REACTIONS (3)
  - Colorectal cancer [Unknown]
  - Gastrointestinal carcinoma [Recovering/Resolving]
  - Hepatic cancer stage I [Recovering/Resolving]

NARRATIVE: CASE EVENT DATE: 201909
